FAERS Safety Report 5103174-2 (Version None)
Quarter: 2006Q3

REPORT INFORMATION
  Report Type: 
  Country: None (occurrence: None)
  Receive Date: 20060908
  Receipt Date: 20060908
  Transmission Date: 20061208
  Serious: Yes (Hospitalization)
  Sender: FDA-Public Use
  Company Number: None

PATIENT
  Sex: Male
  Weight: 70.7611 kg

DRUGS (2)
  1. ALIMTA [Suspect]
     Indication: NEOPLASM MALIGNANT
     Dosage: 386 MG IV EVERY 3 WEEKS
     Route: 042
     Dates: start: 20060627, end: 20060808
  2. ERBITUX [Suspect]
     Dosage: 483 MG IV WEEKLY
     Route: 042
     Dates: start: 20060620, end: 20060808

REACTIONS (1)
  - HYPERCALCAEMIA [None]
